FAERS Safety Report 10873533 (Version 1)
Quarter: 2015Q1

REPORT INFORMATION
  Report Type: Spontaneous
  Country: US (occurrence: None)
  Receive Date: 20150223
  Receipt Date: 20150223
  Transmission Date: 20150721
  Serious: Yes (Hospitalization)
  Sender: FDA-Public Use
  Company Number: None

PATIENT
  Age: 44 Year
  Sex: Male
  Weight: 88.9 kg

DRUGS (10)
  1. ZOSYN [Concomitant]
     Active Substance: PIPERACILLIN SODIUM\TAZOBACTAM SODIUM
  2. HEPARIN [Concomitant]
     Active Substance: HEPARIN SODIUM
  3. METOLAZONE. [Suspect]
     Active Substance: METOLAZONE
     Indication: GENERALISED OEDEMA
     Route: 048
     Dates: start: 20150122, end: 20150124
  4. BUMETANIDE. [Concomitant]
     Active Substance: BUMETANIDE
  5. SEVELAMER [Concomitant]
     Active Substance: SEVELAMER
  6. ASPIRIN. [Concomitant]
     Active Substance: ASPIRIN
  7. CARVEDILOL. [Concomitant]
     Active Substance: CARVEDILOL
  8. INSULIN ASPART [Concomitant]
     Active Substance: INSULIN ASPART
  9. PERCOCET [Concomitant]
     Active Substance: ACETAMINOPHEN\OXYCODONE HYDROCHLORIDE
  10. INSULIN DETEMIR [Concomitant]
     Active Substance: INSULIN DETEMIR

REACTIONS (4)
  - Stevens-Johnson syndrome [None]
  - Cellulitis [None]
  - Dialysis [None]
  - Infection [None]

NARRATIVE: CASE EVENT DATE: 20150124
